FAERS Safety Report 18626771 (Version 1)
Quarter: 2020Q4

REPORT INFORMATION
  Report Type: Spontaneous
  Country: SE (occurrence: SE)
  Receive Date: 20201217
  Receipt Date: 20201217
  Transmission Date: 20210114
  Serious: Yes (Death)
  Sender: FDA-Public Use
  Company Number: SE-JNJFOC-20201212664

PATIENT
  Age: 39 Year
  Sex: Female

DRUGS (7)
  1. ABILIFY [Suspect]
     Active Substance: ARIPIPRAZOLE
     Indication: SCHIZOPHRENIA
     Route: 048
     Dates: start: 2013
  2. PROPAVAN [Concomitant]
     Active Substance: PROPIOMAZINE
     Route: 065
  3. XEPLION [Suspect]
     Active Substance: PALIPERIDONE PALMITATE
  4. METFORMIN [Concomitant]
     Active Substance: METFORMIN HYDROCHLORIDE
     Route: 065
  5. XEPLION [Suspect]
     Active Substance: PALIPERIDONE PALMITATE
     Indication: SCHIZOPHRENIA
     Dosage: 2016 SANKT FRAN 150 MG VAR 4:E VECKA TILL 100 MG VAR 4:E VECKA.
     Route: 030
     Dates: start: 2011
  6. XEPLION [Suspect]
     Active Substance: PALIPERIDONE PALMITATE
     Dosage: 100MG/ML 1 ML VAR 4:E VECKA2016 SANKT FRAN 150 MG VAR 4:E VECKA.
     Route: 030
     Dates: start: 2016
  7. LEVAXIN [Concomitant]
     Active Substance: LEVOTHYROXINE SODIUM
     Route: 065

REACTIONS (7)
  - Hepatomegaly [Fatal]
  - Hepatic steatosis [Fatal]
  - Overweight [Fatal]
  - Cardiac failure acute [Fatal]
  - Cardiomegaly [Fatal]
  - Pancreatic steatosis [Fatal]
  - Cardiac failure chronic [Fatal]

NARRATIVE: CASE EVENT DATE: 2019
